FAERS Safety Report 6287078-8 (Version None)
Quarter: 2009Q3

REPORT INFORMATION
  Report Type: 
  Country: None (occurrence: None)
  Receive Date: 20090724
  Receipt Date: 20090713
  Transmission Date: 20100115
  Serious: Yes (Death, Other)
  Sender: FDA-Public Use
  Company Number: MC200900250

PATIENT
  Sex: 0

DRUGS (7)
  1. ANGIOMAX [Suspect]
     Indication: PERCUTANEOUS CORONARY INTERVENTION
     Dosage: 0.75 MG/KG, BOLUS, INTRAVENOUS, 1.75 MG/KG,  HR, INTRAVENOUS, 0.25 MG/KG POST PCI, HR
     Route: 042
     Dates: start: 20070101, end: 20070101
  2. ANGIOMAX [Suspect]
     Indication: PERCUTANEOUS CORONARY INTERVENTION
     Dosage: 0.75 MG/KG, BOLUS, INTRAVENOUS, 1.75 MG/KG,  HR, INTRAVENOUS, 0.25 MG/KG POST PCI, HR
     Route: 042
     Dates: start: 20070101, end: 20070101
  3. ANGIOMAX [Suspect]
     Indication: PERCUTANEOUS CORONARY INTERVENTION
     Dosage: 0.75 MG/KG, BOLUS, INTRAVENOUS, 1.75 MG/KG,  HR, INTRAVENOUS, 0.25 MG/KG POST PCI, HR
     Route: 042
     Dates: start: 20070101, end: 20070101
  4. HEPARIN [Suspect]
     Dosage: 60 TO 80 IU/KG, BOLUS, INTRAVENOUS, 12 IU/KG, HR, INTRAVENOUS
     Route: 042
     Dates: start: 20070101, end: 20070101
  5. HEPARIN [Suspect]
     Dosage: 60 TO 80 IU/KG, BOLUS, INTRAVENOUS, 12 IU/KG, HR, INTRAVENOUS
     Route: 042
     Dates: start: 20070101, end: 20070101
  6. ASPIRIN [Suspect]
     Dosage: 250 MG, SINGLE, ORAL
     Route: 048
     Dates: start: 20070101, end: 20070101
  7. CLOPIDOGREL [Suspect]

REACTIONS (6)
  - CORONARY ARTERY DISSECTION [None]
  - CORONARY REVASCULARISATION [None]
  - GASTROINTESTINAL HAEMORRHAGE [None]
  - HAEMORRHAGE [None]
  - MYOCARDIAL INFARCTION [None]
  - THROMBOSIS [None]
